FAERS Safety Report 20821460 (Version 5)
Quarter: 2024Q2

REPORT INFORMATION
  Report Type: Spontaneous
  Country: US (occurrence: US)
  Receive Date: 20220512
  Receipt Date: 20240531
  Transmission Date: 20240716
  Serious: Yes (Other)
  Sender: FDA-Public Use
  Company Number: US-PFIZER INC-2020279375

PATIENT
  Age: 66 Year
  Sex: Female

DRUGS (2)
  1. XELJANZ XR [Suspect]
     Active Substance: TOFACITINIB CITRATE
     Indication: Arthritis
     Dosage: 11 MG
     Dates: end: 202304
  2. TYLENOL [Concomitant]
     Active Substance: ACETAMINOPHEN
     Dosage: UNK

REACTIONS (14)
  - Type 2 diabetes mellitus [Unknown]
  - Drug ineffective [Unknown]
  - Pain [Unknown]
  - Somnolence [Unknown]
  - Blood pressure increased [Unknown]
  - Gait disturbance [Unknown]
  - Joint instability [Unknown]
  - Musculoskeletal discomfort [Unknown]
  - Illness [Not Recovered/Not Resolved]
  - Hypokinesia [Unknown]
  - Vertigo [Unknown]
  - COVID-19 [Recovered/Resolved]
  - Arthralgia [Not Recovered/Not Resolved]
  - Pain in extremity [Not Recovered/Not Resolved]

NARRATIVE: CASE EVENT DATE: 20230101
